FAERS Safety Report 7482495-2 (Version None)
Quarter: 2011Q2

REPORT INFORMATION
  Report Type: 
  Country: None (occurrence: None)
  Receive Date: 20110516
  Receipt Date: 20110509
  Transmission Date: 20111010
  Serious: Yes (Other)
  Sender: FDA-Public Use
  Company Number: US-ABBOTT-11P-163-0724388-00

PATIENT
  Sex: Female
  Weight: 77.634 kg

DRUGS (5)
  1. HUMIRA [Suspect]
     Indication: RHEUMATOID ARTHRITIS
     Route: 058
     Dates: start: 20040801, end: 20100101
  2. MIDODRINE HYDROCHLORIDE [Concomitant]
     Indication: HYPOTENSION
     Route: 048
  3. HUMIRA [Suspect]
     Indication: RHEUMATOID ARTHRITIS
     Route: 058
     Dates: start: 20100101, end: 20110423
  4. NAPROXEN [Concomitant]
     Indication: RHEUMATOID ARTHRITIS
     Dosage: UP TO 2 TABS DAILY AS NEEDED
  5. HYOSCYAMINE [Concomitant]
     Indication: FLATULENCE
     Dosage: AT BEDTIME
     Route: 060

REACTIONS (3)
  - INSTILLATION SITE DISCOMFORT [None]
  - DEVICE DISLOCATION [None]
  - IMPLANT SITE SCAR [None]
